FAERS Safety Report 4675444-3 (Version None)
Quarter: 2005Q2

REPORT INFORMATION
  Report Type: 
  Country: None (occurrence: None)
  Receive Date: 20050527
  Receipt Date: 20050309
  Transmission Date: 20051028
  Serious: No
  Sender: FDA-Public Use
  Company Number: US-BRISTOL-MYERS SQUIBB COMPANY-12891040

PATIENT
  Sex: Male
  Weight: 79 kg

DRUGS (4)
  1. ABILIFY [Suspect]
     Indication: SCHIZOPHRENIA
     Dates: start: 20050308
  2. TRAZODONE HCL [Concomitant]
  3. EFFEXOR [Concomitant]
  4. KLONOPIN [Concomitant]

REACTIONS (4)
  - DIZZINESS [None]
  - EYE PAIN [None]
  - HEADACHE [None]
  - NAUSEA [None]
